FAERS Safety Report 10126151 (Version 2)
Quarter: 2015Q1

REPORT INFORMATION
  Report Type: Other
  Country: US (occurrence: US)
  Receive Date: 20140427
  Receipt Date: 20150302
  Transmission Date: 20150720
  Serious: Yes (Hospitalization)
  Sender: FDA-Public Use
  Company Number: US-GSKPPD-2014GSK030622

PATIENT
  Age: 61 Year
  Sex: Female

DRUGS (5)
  1. ZESTRIL [Concomitant]
     Active Substance: LISINOPRIL
  2. AVANDIA [Suspect]
     Active Substance: ROSIGLITAZONE MALEATE
     Indication: DIABETES MELLITUS
     Dosage: DATES OF AVANDIA USE COULD NOT BE CONFIRMED IN RECORDS REVIEWED.
     Route: 048
  3. DILTIAZEM [Concomitant]
     Active Substance: DILTIAZEM
  4. FUROSEMIDE. [Concomitant]
     Active Substance: FUROSEMIDE
  5. PLAVIX [Concomitant]
     Active Substance: CLOPIDOGREL BISULFATE

REACTIONS (1)
  - Transient ischaemic attack [Recovered/Resolved]

NARRATIVE: CASE EVENT DATE: 20000805
